FAERS Safety Report 9311863 (Version 1)
Quarter: 2013Q2

REPORT INFORMATION
  Report Type: Spontaneous
  Country: JP (occurrence: JP)
  Receive Date: 20130528
  Receipt Date: 20130528
  Transmission Date: 20140414
  Serious: Yes (Other)
  Sender: FDA-Public Use
  Company Number: PHHY2013JP051920

PATIENT
  Age: 37 Year
  Sex: Male

DRUGS (2)
  1. LAMOTRIGINE [Suspect]
     Indication: EPILEPSY
  2. ESTAZOLAM [Concomitant]
     Indication: INSOMNIA

REACTIONS (15)
  - Acute generalised exanthematous pustulosis [Recovered/Resolved]
  - Toxic epidermal necrolysis [Recovered/Resolved]
  - Skin necrosis [Recovered/Resolved]
  - Epidermal necrosis [Recovered/Resolved]
  - Subcorneal pustular dermatosis [Recovered/Resolved]
  - Perivascular dermatitis [Recovered/Resolved]
  - Conjunctival hyperaemia [Recovered/Resolved]
  - Erythema [Recovered/Resolved]
  - Mucosal erosion [Recovered/Resolved]
  - Rash pustular [Recovered/Resolved]
  - Blister [Recovered/Resolved]
  - Fatigue [Recovered/Resolved]
  - Pyrexia [Recovered/Resolved]
  - Apoptosis [Recovered/Resolved]
  - Rash pustular [Recovered/Resolved]
